FAERS Safety Report 4390159-7 (Version None)
Quarter: 2004Q3

REPORT INFORMATION
  Report Type: 
  Country: None (occurrence: None)
  Receive Date: 20040706
  Receipt Date: 20040119
  Transmission Date: 20050211
  Serious: Yes (Hospitalization)
  Sender: FDA-Public Use
  Company Number: JP-GLAXOSMITHKLINE-B0320407A

PATIENT
  Age: 66 Year
  Sex: Male
  Weight: 61 kg

DRUGS (9)
  1. ZOVIRAX [Suspect]
     Indication: HERPES ZOSTER
     Dosage: 200MG FOUR TIMES PER DAY
     Route: 048
     Dates: start: 20030824, end: 20030824
  2. ZOVIRAX [Suspect]
     Dosage: 125MG PER DAY
     Route: 042
     Dates: start: 20030820, end: 20030823
  3. ALLOPURINOL [Concomitant]
     Dosage: 50MG PER DAY
     Route: 048
  4. SENNOSIDE [Concomitant]
     Indication: CONSTIPATION
     Dosage: 24MG PER DAY
     Route: 048
  5. PRECIPITATED CALCIUM CARBONATE [Concomitant]
     Indication: BLOOD PHOSPHORUS INCREASED
     Dosage: 2500MG PER DAY
     Route: 048
  6. NIFEDIPINE [Concomitant]
     Indication: HYPERTENSION
     Dosage: 40MG PER DAY
     Route: 048
  7. CANDESARTAN CILEXETIL [Concomitant]
     Indication: HYPERTENSION
     Dosage: 8MG PER DAY
     Route: 048
  8. VIDARABINE [Concomitant]
     Indication: HERPES ZOSTER
     Dosage: 2G PER DAY
     Route: 061
     Dates: start: 20030825, end: 20030909
  9. POLYETHYLENE GLYCOL TREATED HUMAN NORMAL IMMUNOGLOBULIN [Concomitant]
     Indication: HERPES ZOSTER
     Dosage: 5G PER DAY
     Route: 042
     Dates: start: 20030825, end: 20030827

REACTIONS (4)
  - DEPRESSED LEVEL OF CONSCIOUSNESS [None]
  - DYSLALIA [None]
  - ENCEPHALOPATHY [None]
  - HYPOAESTHESIA [None]
